FAERS Safety Report 12271756 (Version 1)
Quarter: 2016Q2

REPORT INFORMATION
  Report Type: Spontaneous
  Country: RU (occurrence: RU)
  Receive Date: 20160415
  Receipt Date: 20160415
  Transmission Date: 20160815
  Serious: Yes (Life-Threatening)
  Sender: FDA-Public Use
  Company Number: RU-ABBVIE-16P-251-1604870-00

PATIENT
  Age: 48 Year
  Sex: Male

DRUGS (1)
  1. DEPAKINE CHRONOSPHERE [Suspect]
     Active Substance: VALPROIC ACID
     Indication: PRODUCT USED FOR UNKNOWN INDICATION
     Route: 048

REACTIONS (2)
  - Drug ineffective [Unknown]
  - Epilepsy [Not Recovered/Not Resolved]
